FAERS Safety Report 5668527-2 (Version None)
Quarter: 2008Q1

REPORT INFORMATION
  Report Type: 
  Country: None (occurrence: None)
  Receive Date: 20080315
  Receipt Date: 20080227
  Transmission Date: 20080703
  Serious: No
  Sender: FDA-Public Use
  Company Number: US-ABBOTT-08P-163-0440530-00

PATIENT
  Sex: Female
  Weight: 105.78 kg

DRUGS (1)
  1. HUMIRA [Suspect]
     Indication: CROHN'S DISEASE
     Route: 058
     Dates: start: 20070611

REACTIONS (13)
  - ABDOMINAL PAIN UPPER [None]
  - ACCIDENTAL EXPOSURE [None]
  - ASTHENIA [None]
  - FATIGUE [None]
  - FEELING COLD [None]
  - FEELING HOT [None]
  - GASTROINTESTINAL DISORDER [None]
  - GASTROINTESTINAL INFLAMMATION [None]
  - INJECTION SITE HAEMORRHAGE [None]
  - MALAISE [None]
  - PAIN [None]
  - PYREXIA [None]
  - UNEVALUABLE EVENT [None]
